FAERS Safety Report 8014794-X (Version None)
Quarter: 2011Q4

REPORT INFORMATION
  Report Type: 
  Country: None (occurrence: None)
  Receive Date: 20111229
  Receipt Date: 20111221
  Transmission Date: 20120403
  Serious: Yes (Other)
  Sender: FDA-Public Use
  Company Number: US-B.I. PHARMACEUTICALS,INC./RIDGEFIELD-2011-BP-28623BP

PATIENT
  Sex: Male

DRUGS (2)
  1. TRADJENTA [Suspect]
  2. UNIDENTIFIED STATIN [Concomitant]

REACTIONS (1)
  - PLATELET COUNT DECREASED [None]
